FAERS Safety Report 13888674 (Version 3)
Quarter: 2017Q3

REPORT INFORMATION
  Report Type: Spontaneous
  Country: DE (occurrence: DE)
  Receive Date: 20170822
  Receipt Date: 20170902
  Transmission Date: 20171127
  Serious: Yes (Life-Threatening, Hospitalization, Other)
  Sender: FDA-Public Use
  Company Number: DE-AUROBINDO-AUR-APL-2017-39145

PATIENT
  Age: 25 Year
  Sex: Female

DRUGS (2)
  1. AMITRIPTYLINE [Suspect]
     Active Substance: AMITRIPTYLINE
     Indication: PRODUCT USED FOR UNKNOWN INDICATION
     Dosage: 5.5 G, 85 MG/KG
  2. QUETIAPINE. [Suspect]
     Active Substance: QUETIAPINE
     Indication: PRODUCT USED FOR UNKNOWN INDICATION
     Dosage: 10 G, 150 MG/KG
     Route: 065

REACTIONS (7)
  - Overdose [Recovering/Resolving]
  - Ventricular tachycardia [Recovering/Resolving]
  - Arrhythmia [Recovering/Resolving]
  - Anticholinergic syndrome [Recovering/Resolving]
  - Toxicity to various agents [Recovering/Resolving]
  - Cardiogenic shock [Recovering/Resolving]
  - Coma [Recovering/Resolving]
